FAERS Safety Report 13028852 (Version 2)
Quarter: 2019Q3

REPORT INFORMATION
  Report Type: Spontaneous
  Country: FR (occurrence: FR)
  Receive Date: 20161214
  Receipt Date: 20190819
  Transmission Date: 20191004
  Serious: Yes (Hospitalization)
  Sender: FDA-Public Use
  Company Number: FR-009507513-1612FRA005948

PATIENT
  Age: 76 Year
  Sex: Male

DRUGS (1)
  1. KEYTRUDA [Suspect]
     Active Substance: PEMBROLIZUMAB
     Indication: METASTATIC MALIGNANT MELANOMA
     Dosage: 1 INFUSION EVERY 3 WEEEKS, POWDER FOR SOLUTION FOR INFUSION
     Route: 042
     Dates: start: 20160205, end: 201703

REACTIONS (2)
  - Eosinophilia [Recovered/Resolved]
  - Myocardial fibrosis [Recovering/Resolving]
